FAERS Safety Report 4850812-5 (Version None)
Quarter: 2005Q4

REPORT INFORMATION
  Report Type: 
  Country: None (occurrence: None)
  Receive Date: 20051208
  Receipt Date: 20051208
  Transmission Date: 20060501
  Serious: Yes (Other)
  Sender: FDA-Public Use
  Company Number: None

PATIENT
  Age: 9 Year
  Sex: Female
  Weight: 38.5 kg

DRUGS (4)
  1. CEFTRIAXONE [Suspect]
     Indication: ARTHRITIS INFECTIVE
     Dosage: 2 GM 2 X DAILY
     Dates: start: 20051120, end: 20051125
  2. CEFTRIAXONE [Suspect]
     Indication: BETA HAEMOLYTIC STREPTOCOCCAL INFECTION
     Dosage: 2 GM 2 X DAILY
     Dates: start: 20051120, end: 20051125
  3. CEFTRIAXONE [Suspect]
     Indication: ARTHRITIS INFECTIVE
     Dosage: 2 GM 2 X DAILY
     Dates: start: 20051126, end: 20051127
  4. CEFTRIAXONE [Suspect]
     Indication: BETA HAEMOLYTIC STREPTOCOCCAL INFECTION
     Dosage: 2 GM 2 X DAILY
     Dates: start: 20051126, end: 20051127

REACTIONS (2)
  - RASH PAPULAR [None]
  - RASH PRURITIC [None]
